FAERS Safety Report 10518723 (Version 2)
Quarter: 2014Q4

REPORT INFORMATION
  Report Type: Spontaneous
  Country: SE (occurrence: SE)
  Receive Date: 20141015
  Receipt Date: 20141015
  Transmission Date: 20150528
  Serious: Yes (Hospitalization)
  Sender: FDA-Public Use
  Company Number: SE-LEO PHARMA-225198

PATIENT
  Age: 18 Year
  Sex: Male

DRUGS (1)
  1. XAMIOL [Suspect]
     Active Substance: BETAMETHASONE DIPROPIONATE\CALCIPOTRIENE HYDRATE
     Indication: VITILIGO

REACTIONS (3)
  - Skin reaction [Unknown]
  - Blood creatinine increased [Unknown]
  - Product use issue [Unknown]

NARRATIVE: CASE EVENT DATE: 20131201
